FAERS Safety Report 9770011 (Version 1)
Quarter: 2013Q4

REPORT INFORMATION
  Report Type: Spontaneous
  Country: US (occurrence: US)
  Receive Date: 20131218
  Receipt Date: 20131218
  Transmission Date: 20140711
  Serious: No
  Sender: FDA-Public Use
  Company Number: US-VERTEX PHARMACEUTICALS INC-AE-2011-000784

PATIENT
  Age: 61 Year
  Sex: Male
  Weight: 77.27 kg

DRUGS (6)
  1. INCIVEK [Suspect]
     Indication: HEPATITIS C
     Route: 048
     Dates: start: 20110807
  2. RIBASPHERE [Concomitant]
     Indication: HEPATITIS C
     Dates: start: 20110807
  3. PEGASYS [Concomitant]
     Indication: HEPATITIS C
     Route: 058
     Dates: start: 20110807
  4. PROZAC [Concomitant]
     Route: 048
  5. ATIVAN [Concomitant]
     Route: 048
  6. RAMIPRIL [Concomitant]
     Route: 048

REACTIONS (1)
  - Headache [Unknown]
